FAERS Safety Report 5144146-1 (Version None)
Quarter: 2006Q4

REPORT INFORMATION
  Report Type: 
  Country: None (occurrence: None)
  Receive Date: 20061106
  Receipt Date: 20061030
  Transmission Date: 20070319
  Serious: Yes (Death, Hospitalization)
  Sender: FDA-Public Use
  Company Number: US-BRISTOL-MYERS SQUIBB COMPANY-13562160

PATIENT
  Age: 45 Year
  Sex: Male
  Weight: 50 kg

DRUGS (5)
  1. CETUXIMAB [Suspect]
     Indication: OESOPHAGEAL CARCINOMA
     Route: 042
     Dates: start: 20061016, end: 20061016
  2. CISPLATIN [Suspect]
     Indication: OESOPHAGEAL CARCINOMA
     Route: 042
     Dates: start: 20061016, end: 20061016
  3. IRINOTECAN HCL [Suspect]
     Indication: OESOPHAGEAL CARCINOMA
     Dates: start: 20061016, end: 20061016
  4. RADIATION THERAPY [Suspect]
     Indication: OESOPHAGEAL CARCINOMA
     Dates: start: 20061020, end: 20061020
  5. ROXANOL [Concomitant]

REACTIONS (3)
  - GASTROINTESTINAL NECROSIS [None]
  - HYPERKALAEMIA [None]
  - NEUTROPHIL COUNT DECREASED [None]
